FAERS Safety Report 10367822 (Version 1)
Quarter: 2014Q3

REPORT INFORMATION
  Report Type: Spontaneous
  Country: US (occurrence: US)
  Receive Date: 20140807
  Receipt Date: 20140807
  Transmission Date: 20150326
  Serious: Yes (Other)
  Sender: FDA-Public Use
  Company Number: US-PFIZER INC-2014215387

PATIENT
  Age: 57 Year
  Sex: Male

DRUGS (5)
  1. VORICONAZOLE. [Suspect]
     Active Substance: VORICONAZOLE
     Dosage: UNK
  2. ICLUSIG [Interacting]
     Active Substance: PONATINIB
     Indication: CHRONIC MYELOID LEUKAEMIA
     Dosage: 45 MG, 1X/DAY
     Route: 048
     Dates: start: 20140510
  3. ICLUSIG [Interacting]
     Active Substance: PONATINIB
     Dosage: 30 MG, UNK
  4. ICLUSIG [Interacting]
     Active Substance: PONATINIB
     Dosage: 15 MG, UNK
  5. ICLUSIG [Interacting]
     Active Substance: PONATINIB
     Dosage: UNK
     Dates: start: 20140701

REACTIONS (6)
  - Drug interaction [Not Recovered/Not Resolved]
  - Electrocardiogram QT prolonged [Not Recovered/Not Resolved]
  - Supraventricular tachycardia [Not Recovered/Not Resolved]
  - Muscle twitching [Not Recovered/Not Resolved]
  - Electrocardiogram T wave abnormal [Unknown]
  - Hypertension [Recovered/Resolved]
